FAERS Safety Report 6390441-8 (Version None)
Quarter: 2009Q4

REPORT INFORMATION
  Report Type: 
  Country: None (occurrence: None)
  Receive Date: 20091006
  Receipt Date: 20090928
  Transmission Date: 20100525
  Serious: Yes (Other)
  Sender: FDA-Public Use
  Company Number: US-AVENTIS-200918314US

PATIENT
  Sex: Male
  Weight: 83.92 kg

DRUGS (6)
  1. LANTUS [Suspect]
     Indication: TYPE 1 DIABETES MELLITUS
     Dosage: DOSE: 16-18
     Route: 058
     Dates: start: 20070101
  2. LANTUS [Suspect]
     Dosage: DOSE: 18 U AT NIGHTT N
     Route: 058
  3. VASOTEC                            /00935901/ [Concomitant]
     Dosage: DOSE: UNK
  4. LIPITOR [Concomitant]
     Dosage: DOSE: UNK
  5. REQUIP [Concomitant]
     Dosage: DOSE: UNK
  6. AMBIEN [Concomitant]
     Dosage: DOSE: UNK

REACTIONS (2)
  - CATARACT [None]
  - EYE DISORDER [None]
